FAERS Safety Report 9468974 (Version 1)
Quarter: 2013Q3

REPORT INFORMATION
  Report Type: Report from Study
  Country: US (occurrence: US)
  Receive Date: 20130821
  Receipt Date: 20130821
  Transmission Date: 20140515
  Serious: Yes (Hospitalization)
  Sender: FDA-Public Use
  Company Number: US-MERCK-1308USA006230

PATIENT
  Age: 60 Year
  Sex: Male
  Weight: 90.52 kg

DRUGS (12)
  1. TEMOZOLOMIDE [Suspect]
     Indication: GLIOBLASTOMA
     Dosage: 200 MG/M2, UNK
     Route: 048
     Dates: start: 20130104, end: 20130621
  2. ONDANSETRON [Concomitant]
  3. DEXAMETHASONE [Concomitant]
  4. TRADITIONAL MEDICINES SMOOTH MOVE HERBAL STIMULANT LAXATIVE [Concomitant]
  5. BISACODYL [Concomitant]
  6. DOCUSATE SODIUM [Concomitant]
  7. TAMSULOSIN HYDROCHLORIDE [Concomitant]
  8. ACETAMINOPHEN (+) HYDROCODONE BITARTRATE [Concomitant]
  9. OXYCODONE [Concomitant]
  10. POLYETHYLENE GLYCOL [Concomitant]
  11. NICARDIPINE HYDROCHLORIDE [Concomitant]
  12. LABETALOL HYDROCHLORIDE [Concomitant]

REACTIONS (1)
  - Meningitis [Recovered/Resolved]
